FAERS Safety Report 24089621 (Version 6)
Quarter: 2024Q4

REPORT INFORMATION
  Report Type: Spontaneous
  Country: DE (occurrence: DE)
  Receive Date: 20240715
  Receipt Date: 20241118
  Transmission Date: 20250114
  Serious: Yes (Life-Threatening)
  Sender: AMGEN
  Company Number: DE-AMGEN-DEUSP2024136769

PATIENT
  Age: 17 Year
  Sex: Female
  Weight: 65 kg

DRUGS (56)
  1. BLINATUMOMAB [Suspect]
     Active Substance: BLINATUMOMAB
     Indication: Precursor B-lymphoblastic lymphoma
     Dosage: 15 MICROGRAM/SQ. METER, QD
     Route: 042
     Dates: start: 20240618, end: 20240619
  2. BLINATUMOMAB [Suspect]
     Active Substance: BLINATUMOMAB
     Dosage: 27 MILLIGRAM, QD, INFUSION (27 MG IN 180 ML)
     Route: 042
     Dates: start: 20240624, end: 20240626
  3. BLINATUMOMAB [Suspect]
     Active Substance: BLINATUMOMAB
     Dosage: 15 MICROGRAM/SQ. METER, QD, CONTINUOUS INFUSION, DOSE INCREASED
     Route: 042
     Dates: start: 20240701, end: 20240704
  4. BESPONSA [Suspect]
     Active Substance: INOTUZUMAB OZOGAMICIN
     Indication: Precursor B-lymphoblastic lymphoma
     Dosage: 1.5 MILLIGRAM, QWK
     Route: 040
     Dates: start: 20240422, end: 20240422
  5. BESPONSA [Suspect]
     Active Substance: INOTUZUMAB OZOGAMICIN
     Dosage: 0.9 MILLIGRAM, QWK
     Route: 040
     Dates: start: 20240429, end: 20240506
  6. DEXAMETHASONE [Concomitant]
     Active Substance: DEXAMETHASONE
     Indication: Seizure
     Dosage: UNK
     Dates: start: 20240417, end: 20240417
  7. DEXAMETHASONE [Concomitant]
     Active Substance: DEXAMETHASONE
     Indication: Loss of consciousness
     Dosage: UNK
     Dates: start: 20240418, end: 20240418
  8. DEXAMETHASONE [Concomitant]
     Active Substance: DEXAMETHASONE
     Indication: Precursor B-lymphoblastic lymphoma
     Dosage: UNK
     Dates: start: 20240419, end: 20240419
  9. DEXAMETHASONE [Concomitant]
     Active Substance: DEXAMETHASONE
     Dosage: UNK
     Dates: start: 20240420, end: 20240420
  10. DEXAMETHASONE [Concomitant]
     Active Substance: DEXAMETHASONE
     Dosage: UNK
     Dates: start: 2024, end: 20240629
  11. DEXAMETHASONE [Concomitant]
     Active Substance: DEXAMETHASONE
     Dosage: UNK
     Dates: start: 20240701, end: 20240704
  12. AMBISOME [Concomitant]
     Active Substance: AMPHOTERICIN B
     Indication: Precursor B-lymphoblastic lymphoma
     Dosage: UNK
     Route: 042
     Dates: start: 20240419, end: 20240507
  13. AMBISOME [Concomitant]
     Active Substance: AMPHOTERICIN B
     Dosage: UNK
     Route: 042
     Dates: start: 20240510, end: 20240510
  14. AMBISOME [Concomitant]
     Active Substance: AMPHOTERICIN B
     Dosage: UNK
     Route: 042
     Dates: start: 20240514, end: 20240514
  15. AMBISOME [Concomitant]
     Active Substance: AMPHOTERICIN B
     Dosage: UNK
     Route: 042
     Dates: start: 20240515, end: 20240516
  16. AMBISOME [Concomitant]
     Active Substance: AMPHOTERICIN B
     Dosage: UNK
     Route: 042
     Dates: start: 20240517, end: 20240517
  17. METAMIZOL [Concomitant]
     Active Substance: METAMIZOLE SODIUM
     Indication: Precursor B-lymphoblastic lymphoma
     Dosage: UNK
     Route: 042
     Dates: start: 20240415, end: 20240416
  18. METAMIZOL [Concomitant]
     Active Substance: METAMIZOLE SODIUM
     Dosage: UNK
     Route: 042
     Dates: start: 20240417, end: 20240417
  19. METAMIZOL [Concomitant]
     Active Substance: METAMIZOLE SODIUM
     Dosage: UNK
     Route: 042
     Dates: start: 20240418, end: 20240418
  20. METAMIZOL [Concomitant]
     Active Substance: METAMIZOLE SODIUM
     Dosage: UNK
     Route: 042
     Dates: start: 20240419, end: 20240419
  21. METAMIZOL [Concomitant]
     Active Substance: METAMIZOLE SODIUM
     Dosage: UNK
     Route: 042
     Dates: start: 20240422, end: 20240422
  22. TRENANTONE [Concomitant]
     Active Substance: LEUPROLIDE ACETATE
     Indication: Precursor B-lymphoblastic lymphoma
     Dosage: UNK
     Route: 048
     Dates: start: 20240416, end: 20240416
  23. OMEPRAZOLE [Concomitant]
     Active Substance: OMEPRAZOLE
     Indication: Precursor B-lymphoblastic lymphoma
     Dosage: UNK
     Route: 048
     Dates: start: 20240418, end: 20240501
  24. Dormicum [Concomitant]
     Indication: Precursor B-lymphoblastic lymphoma
     Dosage: UNK
     Route: 042
     Dates: start: 20240417, end: 20240417
  25. ALLOPURINOL [Concomitant]
     Active Substance: ALLOPURINOL
     Indication: Precursor B-lymphoblastic lymphoma
     Dosage: UNK
     Dates: start: 20240415, end: 20240415
  26. ALLOPURINOL [Concomitant]
     Active Substance: ALLOPURINOL
     Dosage: UNK
     Dates: start: 20240416, end: 20240426
  27. SULFAMETHOXAZOLE\TRIMETHOPRIM [Concomitant]
     Active Substance: SULFAMETHOXAZOLE\TRIMETHOPRIM
     Indication: Precursor B-lymphoblastic lymphoma
     Dosage: UNK
     Route: 048
     Dates: start: 20240420, end: 20240505
  28. ACETAMINOPHEN [Concomitant]
     Active Substance: ACETAMINOPHEN
     Indication: Precursor B-lymphoblastic lymphoma
     Dosage: UNK
     Route: 042
     Dates: start: 20240422, end: 20240422
  29. ACETAMINOPHEN [Concomitant]
     Active Substance: ACETAMINOPHEN
     Dosage: UNK
     Route: 042
     Dates: start: 20240427, end: 20240427
  30. ACETAMINOPHEN [Concomitant]
     Active Substance: ACETAMINOPHEN
     Dosage: UNK
     Route: 042
     Dates: start: 20240428, end: 20240428
  31. ACETAMINOPHEN [Concomitant]
     Active Substance: ACETAMINOPHEN
     Dosage: UNK
     Route: 042
     Dates: start: 20240429, end: 20240501
  32. ACETAMINOPHEN [Concomitant]
     Active Substance: ACETAMINOPHEN
     Dosage: UNK
     Route: 042
     Dates: start: 20240502, end: 20240502
  33. ACETAMINOPHEN [Concomitant]
     Active Substance: ACETAMINOPHEN
     Dosage: UNK
     Route: 042
     Dates: start: 20240503, end: 20240503
  34. ACETAMINOPHEN [Concomitant]
     Active Substance: ACETAMINOPHEN
     Dosage: UNK
     Route: 042
     Dates: start: 20240504, end: 20240504
  35. ONDANSETRON [Concomitant]
     Active Substance: ONDANSETRON
     Indication: Precursor B-lymphoblastic lymphoma
     Dosage: UNK
     Route: 042
     Dates: start: 20240429, end: 20240429
  36. DIMENHYDRINATE [Concomitant]
     Active Substance: DIMENHYDRINATE
     Indication: Precursor B-lymphoblastic lymphoma
     Dosage: UNK
     Route: 042
     Dates: start: 20240426, end: 20240426
  37. FUROSEMIDE [Concomitant]
     Active Substance: FUROSEMIDE
     Indication: Precursor B-lymphoblastic lymphoma
     Dosage: UNK
     Route: 042
     Dates: start: 20240415, end: 20240418
  38. FUROSEMIDE [Concomitant]
     Active Substance: FUROSEMIDE
     Dosage: UNK
     Route: 042
     Dates: start: 20240420, end: 20240420
  39. FUROSEMIDE [Concomitant]
     Active Substance: FUROSEMIDE
     Dosage: UNK
     Route: 042
     Dates: start: 20240424, end: 20240424
  40. LACTATED RINGERS SOLUTION [Concomitant]
     Active Substance: CALCIUM CHLORIDE\POTASSIUM CHLORIDE\SODIUM CHLORIDE\SODIUM LACTATE
     Indication: Precursor B-lymphoblastic lymphoma
     Dosage: UNK
     Route: 042
     Dates: start: 20240423, end: 20240423
  41. TAZOBACTAM [Concomitant]
     Active Substance: TAZOBACTAM
     Indication: Precursor B-lymphoblastic lymphoma
     Dosage: UNK
     Route: 042
     Dates: start: 20240422, end: 20240422
  42. TAZOBACTAM [Concomitant]
     Active Substance: TAZOBACTAM
     Dosage: UNK
     Route: 042
     Dates: start: 20240423, end: 20240502
  43. CASPOFUNGIN [Concomitant]
     Active Substance: CASPOFUNGIN
     Indication: Precursor B-lymphoblastic lymphoma
     Dosage: UNK
     Route: 042
     Dates: start: 20240501, end: 20240501
  44. CASPOFUNGIN [Concomitant]
     Active Substance: CASPOFUNGIN
     Dosage: UNK
     Route: 042
     Dates: start: 20240502, end: 20240506
  45. VANCOMYCIN [Concomitant]
     Active Substance: VANCOMYCIN
     Indication: Precursor B-lymphoblastic lymphoma
     Dosage: UNK
     Route: 042
     Dates: start: 20240426, end: 20240426
  46. VANCOMYCIN [Concomitant]
     Active Substance: VANCOMYCIN
     Dosage: UNK
     Route: 042
     Dates: start: 20240427, end: 20240427
  47. VANCOMYCIN [Concomitant]
     Active Substance: VANCOMYCIN
     Dosage: UNK
     Route: 042
     Dates: start: 20240428, end: 20240501
  48. VANCOMYCIN [Concomitant]
     Active Substance: VANCOMYCIN
     Dosage: UNK
     Route: 042
     Dates: start: 20240502, end: 20240502
  49. Laxans [Concomitant]
     Indication: Precursor B-lymphoblastic lymphoma
     Dosage: UNK
     Route: 048
     Dates: start: 20240427, end: 20240428
  50. POLYETHYLENE GLYCOLS [Concomitant]
     Active Substance: POLYETHYLENE GLYCOLS
     Indication: Precursor B-lymphoblastic lymphoma
     Dosage: UNK
     Route: 048
     Dates: start: 20240426, end: 20240426
  51. POTASSIUM CHLORIDE [Concomitant]
     Active Substance: POTASSIUM CHLORIDE
     Indication: Precursor B-lymphoblastic lymphoma
     Dosage: UNK
     Route: 048
     Dates: start: 20240428, end: 20240503
  52. LACTULOSE [Concomitant]
     Active Substance: LACTULOSE
     Indication: Precursor B-lymphoblastic lymphoma
     Dosage: UNK
     Route: 048
     Dates: start: 20240503, end: 20240505
  53. LACTULOSE [Concomitant]
     Active Substance: LACTULOSE
     Dosage: UNK
     Route: 048
     Dates: start: 20240506, end: 20240506
  54. LACTULOSE [Concomitant]
     Active Substance: LACTULOSE
     Dosage: UNK
     Route: 048
     Dates: start: 20240507, end: 20240507
  55. ACYCLOVIR [Concomitant]
     Active Substance: ACYCLOVIR
     Indication: Precursor B-lymphoblastic lymphoma
     Dosage: UNK
     Dates: start: 20240506
  56. METHOTREXATE SODIUM [Concomitant]
     Active Substance: METHOTREXATE SODIUM
     Indication: Precursor B-lymphoblastic lymphoma
     Dosage: UNK
     Route: 029
     Dates: start: 20240618

REACTIONS (3)
  - Loss of consciousness [Recovered/Resolved]
  - Seizure [Recovered/Resolved]
  - Off label use [Unknown]

NARRATIVE: CASE EVENT DATE: 20240619
